FAERS Safety Report 25067803 (Version 1)
Quarter: 2025Q1

REPORT INFORMATION
  Report Type: Spontaneous
  Country: FR (occurrence: FR)
  Receive Date: 20250312
  Receipt Date: 20250312
  Transmission Date: 20250408
  Serious: Yes (Other)
  Sender: STRIDES
  Company Number: FR-STRIDES ARCOLAB LIMITED-2025SP002984

PATIENT
  Age: 18 Year
  Sex: Male

DRUGS (6)
  1. ETOPOSIDE [Suspect]
     Active Substance: ETOPOSIDE
     Indication: Medulloblastoma
     Route: 048
  2. ETOPOSIDE [Suspect]
     Active Substance: ETOPOSIDE
     Indication: Immunosuppressant drug therapy
     Route: 065
  3. AXITINIB [Suspect]
     Active Substance: AXITINIB
     Indication: Medulloblastoma
     Route: 048
  4. BEVACIZUMAB [Suspect]
     Active Substance: BEVACIZUMAB
     Indication: Immunosuppressant drug therapy
     Route: 065
  5. CARBOPLATIN [Suspect]
     Active Substance: CARBOPLATIN
     Indication: Immunosuppressant drug therapy
     Route: 065
  6. THIOTEPA [Suspect]
     Active Substance: THIOTEPA
     Indication: Immunosuppressant drug therapy
     Route: 065

REACTIONS (4)
  - Hypothyroidism [Unknown]
  - Fatigue [Unknown]
  - Therapy partial responder [Unknown]
  - Off label use [Unknown]
